FAERS Safety Report 5721746-9 (Version None)
Quarter: 2008Q2

REPORT INFORMATION
  Report Type: 
  Country: None (occurrence: None)
  Receive Date: 20080429
  Receipt Date: 20070403
  Transmission Date: 20081010
  Serious: No
  Sender: FDA-Public Use
  Company Number: US-ASTRAZENECA-2007UW06608

PATIENT
  Age: 76 Year
  Sex: Female
  Weight: 68 kg

DRUGS (8)
  1. NEXIUM [Suspect]
     Indication: GASTROOESOPHAGEAL REFLUX DISEASE
     Route: 048
  2. DIGOXIN [Concomitant]
  3. PERSANTINE [Concomitant]
  4. ASPIRIN [Concomitant]
  5. TOPROL-XL [Concomitant]
  6. ALLEGRA [Concomitant]
  7. NASONEX [Concomitant]
  8. VITAMIN CAP [Concomitant]

REACTIONS (2)
  - CARPAL TUNNEL SYNDROME [None]
  - MUSCLE SPASMS [None]
